FAERS Safety Report 4608764-9 (Version None)
Quarter: 2005Q1

REPORT INFORMATION
  Report Type: 
  Country: None (occurrence: None)
  Receive Date: 20050309
  Receipt Date: 20050221
  Transmission Date: 20050727
  Serious: Yes (Life-Threatening, Hospitalization)
  Sender: FDA-Public Use
  Company Number: FR_050205879

PATIENT
  Age: 80 Year
  Sex: Female

DRUGS (8)
  1. CEFACLOR [Suspect]
     Indication: BRONCHOPNEUMONIA
     Dosage: 500 MG/2 DAY
     Dates: start: 20041020, end: 20041029
  2. PREVISCAN(FLUINDIONE) [Concomitant]
  3. PREDNISOLONE [Concomitant]
  4. LASILIX (FUROSEMIDE) [Concomitant]
  5. LEVOTHYROXINE SODIUM [Concomitant]
  6. AMIODARONE [Concomitant]
  7. MOLSIDOMINE [Concomitant]
  8. SPREOR (SALBUTAMOL) [Concomitant]

REACTIONS (12)
  - ABDOMINAL HAEMATOMA [None]
  - ACUTE RESPIRATORY FAILURE [None]
  - ATRIAL TACHYCARDIA [None]
  - DRUG INTERACTION [None]
  - HYPOCHROMIC ANAEMIA [None]
  - HYPOPROTHROMBINAEMIA [None]
  - HYPOXIA [None]
  - INTERNATIONAL NORMALISED RATIO DECREASED [None]
  - MUSCLE HAEMORRHAGE [None]
  - PROTHROMBIN TIME PROLONGED [None]
  - SKIN DISCOLOURATION [None]
  - SUPERINFECTION LUNG [None]
